FAERS Safety Report 25864480 (Version 1)
Quarter: 2025Q3

REPORT INFORMATION
  Report Type: Spontaneous
  Country: US (occurrence: US)
  Receive Date: 20250930
  Receipt Date: 20250930
  Transmission Date: 20251020
  Serious: No
  Sender: DAIICHI
  Company Number: US-DSJP-DS-2025-166860-US

PATIENT
  Sex: Female

DRUGS (1)
  1. DATROWAY [Suspect]
     Active Substance: DATOPOTAMAB DERUXTECAN-DLNK
     Indication: Lung neoplasm malignant
     Route: 065
     Dates: start: 202509

REACTIONS (1)
  - Vulvovaginal pruritus [Unknown]

NARRATIVE: CASE EVENT DATE: 20250901
